FAERS Safety Report 18220207 (Version 1)
Quarter: 2020Q3

REPORT INFORMATION
  Report Type: Spontaneous
  Country: IT (occurrence: IT)
  Receive Date: 20200902
  Receipt Date: 20200902
  Transmission Date: 20201103
  Serious: Yes (Hospitalization)
  Sender: FDA-Public Use
  Company Number: IT-AUROBINDO-AUR-APL-2019-052346

PATIENT
  Age: 48 Year
  Sex: Female

DRUGS (9)
  1. IBUPROFEN. [Suspect]
     Active Substance: IBUPROFEN
     Indication: CANCER PAIN
     Dosage: 800 MILLIGRAM DAILY;
     Route: 065
  2. METHADONE [Suspect]
     Active Substance: METHADONE HYDROCHLORIDE
     Indication: PRODUCT USED FOR UNKNOWN INDICATION
     Dosage: 90 MILLIGRAM DAILY; ADMINISTERED IN THREE DIVIDED DOSES
     Route: 048
  3. AMITRIPTYLINE [Suspect]
     Active Substance: AMITRIPTYLINE
     Indication: CANCER PAIN
     Dosage: 30 MILLIGRAM DAILY;
     Route: 065
  4. KETAMINE [Suspect]
     Active Substance: KETAMINE
     Indication: CANCER PAIN
     Dosage: 100 MILLIGRAM DAILY; KETAMINE BURST
     Route: 065
  5. MIDAZOLAM. [Suspect]
     Active Substance: MIDAZOLAM
     Indication: CANCER PAIN
     Dosage: 30 MILLIGRAM DAILY; RECEIVED FOR 2 DAYS
     Route: 065
  6. FENTANYL. [Suspect]
     Active Substance: FENTANYL
     Indication: CANCER PAIN
     Dosage: 3.6 MILLIGRAM DAILY; (150 MCG/H)
     Route: 062
  7. TAPENTADOL [Suspect]
     Active Substance: TAPENTADOL
     Indication: CANCER PAIN
     Dosage: UP TO 300MG/DAY
     Route: 065
  8. MORPHINE [Suspect]
     Active Substance: MORPHINE
     Indication: CANCER PAIN
     Dosage: 10MG AS NEEDED (4 TO 6 TIMES/DAY FOR BREAKTHROUGH PAIN)
     Route: 058
  9. METHADONE [Suspect]
     Active Substance: METHADONE HYDROCHLORIDE
     Dosage: UNK
     Route: 042

REACTIONS (1)
  - Drug ineffective [Unknown]
